FAERS Safety Report 6902747-1 (Version None)
Quarter: 2010Q3

REPORT INFORMATION
  Report Type: 
  Country: None (occurrence: None)
  Receive Date: 20100803
  Receipt Date: 20080816
  Transmission Date: 20110219
  Serious: No
  Sender: FDA-Public Use
  Company Number: US-PFIZER INC-2008063194

PATIENT
  Sex: Female
  Weight: 72.7 kg

DRUGS (3)
  1. LYRICA [Suspect]
     Indication: FIBROMYALGIA
     Dates: start: 20080701
  2. VYTORIN [Concomitant]
  3. XALATAN [Concomitant]

REACTIONS (1)
  - VISUAL ACUITY REDUCED [None]
